FAERS Safety Report 16454987 (Version 1)
Quarter: 2019Q2

REPORT INFORMATION
  Report Type: Spontaneous
  Country: US (occurrence: US)
  Receive Date: 20190619
  Receipt Date: 20190619
  Transmission Date: 20190711
  Serious: No
  Sender: FDA-Public Use
  Company Number: US-ALMIRALL, LLC-2019AQU000045

PATIENT

DRUGS (1)
  1. CORDRAN [Suspect]
     Active Substance: FLURANDRENOLIDE
     Indication: DERMATITIS
     Dosage: UNK, QD
     Route: 062
     Dates: end: 20190203

REACTIONS (3)
  - Application site erythema [Unknown]
  - Skin indentation [Unknown]
  - Application site rash [Unknown]

NARRATIVE: CASE EVENT DATE: 2019
